FAERS Safety Report 14223223 (Version 1)
Quarter: 2017Q4

REPORT INFORMATION
  Report Type: Spontaneous
  Country: US (occurrence: US)
  Receive Date: 20171124
  Receipt Date: 20171124
  Transmission Date: 20180321
  Serious: Yes (Hospitalization, Other)
  Sender: FDA-Public Use
  Company Number: US-BRISTOL-MYERS SQUIBB COMPANY-BMS-2017-105205

PATIENT
  Age: 58 Year
  Sex: Male

DRUGS (1)
  1. OPDIVO [Suspect]
     Active Substance: NIVOLUMAB
     Indication: MALIGNANT MELANOMA
     Dosage: UNK
     Route: 065
     Dates: start: 201711

REACTIONS (6)
  - Acidosis hyperchloraemic [Recovering/Resolving]
  - Acute kidney injury [Unknown]
  - Hypokalaemia [Recovering/Resolving]
  - Eosinophilia [Unknown]
  - Quadriplegia [Recovered/Resolved]
  - Renal tubular acidosis [Unknown]
